FAERS Safety Report 5046452-8 (Version None)
Quarter: 2006Q3

REPORT INFORMATION
  Report Type: 
  Country: None (occurrence: None)
  Receive Date: 20060710
  Receipt Date: 20060628
  Transmission Date: 20061208
  Serious: Yes (Hospitalization)
  Sender: FDA-Public Use
  Company Number: FR-GLAXOSMITHKLINE-B0429029A

PATIENT
  Age: 97 Year
  Sex: Male

DRUGS (3)
  1. DEROXAT [Suspect]
     Dosage: 10MG PER DAY
     Route: 048
     Dates: end: 20060518
  2. PLAVIX [Suspect]
     Indication: CEREBROVASCULAR DISORDER
     Route: 048
     Dates: start: 20060407, end: 20060518
  3. DAFLON [Concomitant]
     Dosage: 1TAB TWICE PER DAY
     Route: 048
     Dates: end: 20060518

REACTIONS (8)
  - ANAEMIA [None]
  - DRUG INTERACTION [None]
  - DUODENAL ULCER [None]
  - GASTROINTESTINAL HAEMORRHAGE [None]
  - HAEMATEMESIS [None]
  - MELAENA [None]
  - PALLOR [None]
  - PLATELET COUNT DECREASED [None]
